FAERS Safety Report 18123399 (Version 1)
Quarter: 2020Q3

REPORT INFORMATION
  Report Type: Spontaneous
  Country: US (occurrence: US)
  Receive Date: 20200807
  Receipt Date: 20200807
  Transmission Date: 20201103
  Serious: No
  Sender: FDA-Public Use
  Company Number: US-009507513-2007TWN008953

PATIENT
  Age: 53 Year

DRUGS (1)
  1. KEYTRUDA [Suspect]
     Active Substance: PEMBROLIZUMAB
     Indication: SMALL CELL LUNG CANCER
     Dosage: 6 CYCLES

REACTIONS (4)
  - Emotional disorder [Unknown]
  - Asthenia [Unknown]
  - Swelling face [Unknown]
  - Blood thyroid stimulating hormone increased [Unknown]
